FAERS Safety Report 5035795-X (Version None)
Quarter: 2006Q2

REPORT INFORMATION
  Report Type: 
  Country: None (occurrence: None)
  Receive Date: 20060526
  Receipt Date: 20060425
  Transmission Date: 20061013
  Serious: No
  Sender: FDA-Public Use
  Company Number: FABR-11505

PATIENT
  Age: 42 Year
  Sex: Male

DRUGS (3)
  1. FABRAZYME [Suspect]
     Indication: FABRY'S DISEASE
     Dosage: 60 MG UNK  IV
     Route: 042
     Dates: start: 20030528
  2. IBUPROFEN [Concomitant]
  3. ALLEGRA [Concomitant]

REACTIONS (2)
  - CHILLS [None]
  - PAIN [None]
